FAERS Safety Report 5650381-6 (Version None)
Quarter: 2008Q1

REPORT INFORMATION
  Report Type: 
  Country: None (occurrence: None)
  Receive Date: 20080305
  Receipt Date: 20080225
  Transmission Date: 20080703
  Serious: No
  Sender: FDA-Public Use
  Company Number: US-BAYER-200814934NA

PATIENT
  Age: 34 Year
  Sex: Female

DRUGS (2)
  1. YAZ [Suspect]
     Indication: CONTRACEPTION
     Dates: start: 20070101, end: 20070601
  2. YAZ [Suspect]
     Dates: start: 20071201, end: 20080201

REACTIONS (5)
  - BREAST TENDERNESS [None]
  - FEELING ABNORMAL [None]
  - MENSTRUATION IRREGULAR [None]
  - PALPITATIONS [None]
  - VAGINAL DISCHARGE [None]
